FAERS Safety Report 11640893 (Version 1)
Quarter: 2015Q4

REPORT INFORMATION
  Report Type: Spontaneous
  Country: US (occurrence: None)
  Receive Date: 20151016
  Receipt Date: 20151016
  Transmission Date: 20160304
  Serious: Yes (Death)
  Sender: FDA-Public Use
  Company Number: None

PATIENT
  Age: 73 Year
  Sex: Male

DRUGS (2)
  1. TICE BCG [Suspect]
     Active Substance: BACILLUS CALMETTE-GUERIN SUBSTRAIN TICE LIVE ANTIGEN
     Indication: BLADDER CANCER
     Dosage: 50 MU, INTRAVESICALLY
     Route: 043
     Dates: start: 201308, end: 201510
  2. INTRON A [Suspect]
     Active Substance: INTERFERON ALFA-2B
     Indication: BLADDER CANCER
     Dosage: 50 MU, INTRAVESICALLY
     Route: 043
     Dates: start: 201507, end: 201510

REACTIONS (1)
  - Death [None]

NARRATIVE: CASE EVENT DATE: 20151015
